FAERS Safety Report 18225630 (Version 1)
Quarter: 2020Q3

REPORT INFORMATION
  Report Type: Other
  Country: FR (occurrence: FR)
  Receive Date: 20200903
  Receipt Date: 20200903
  Transmission Date: 20201103
  Serious: Yes (Death)
  Sender: FDA-Public Use
  Company Number: FR-ORCHID HEALTHCARE-2089351

PATIENT
  Age: 70 Year
  Sex: Male

DRUGS (1)
  1. OLANZAPINE. [Suspect]
     Active Substance: OLANZAPINE
     Indication: PSYCHOTIC DISORDER
     Route: 065

REACTIONS (4)
  - Faecaloma [Fatal]
  - Hypotension [Fatal]
  - Hyperlactacidaemia [Fatal]
  - Acute kidney injury [Fatal]
